FAERS Safety Report 16682103 (Version 2)
Quarter: 2019Q3

REPORT INFORMATION
  Report Type: Report from Study
  Country: MX (occurrence: MX)
  Receive Date: 20190808
  Receipt Date: 20190913
  Transmission Date: 20191004
  Serious: No
  Sender: FDA-Public Use
  Company Number: MX-ORION CORPORATION ORION PHARMA-ENTC2016-0509

PATIENT
  Age: 76 Year
  Sex: Male
  Weight: 71 kg

DRUGS (8)
  1. OMEPRAZOLE. [Concomitant]
     Active Substance: OMEPRAZOLE
     Route: 065
  2. PANTOPRAZOLE [Concomitant]
     Active Substance: PANTOPRAZOLE
     Route: 065
  3. STALEVO [Suspect]
     Active Substance: CARBIDOPA\ENTACAPONE\LEVODOPA
     Dosage: STRENGTH: 50/12.5/200 MG
     Route: 048
     Dates: end: 20190724
  4. NIAR [Concomitant]
     Route: 065
     Dates: start: 2015, end: 201608
  5. PINAVERIUM BROMIDE [Concomitant]
     Active Substance: PINAVERIUM BROMIDE
     Route: 065
     Dates: start: 2011
  6. STALEVO [Suspect]
     Active Substance: CARBIDOPA\ENTACAPONE\LEVODOPA
     Indication: PARKINSON^S DISEASE
     Dosage: STRENGTH: 100/25/200 MG
     Route: 048
     Dates: start: 2010
  7. SIFROL [Concomitant]
     Active Substance: PRAMIPEXOLE
     Route: 065
  8. CHAMOMILE [Concomitant]
     Active Substance: CHAMOMILE
     Route: 065

REACTIONS (9)
  - Product use issue [Unknown]
  - Lymphatic disorder [Not Recovered/Not Resolved]
  - Stress [Unknown]
  - Muscle contractions involuntary [Not Recovered/Not Resolved]
  - Memory impairment [Not Recovered/Not Resolved]
  - Gait inability [Unknown]
  - Malaise [Unknown]
  - Wrong technique in product usage process [Unknown]
  - Therapy cessation [Unknown]

NARRATIVE: CASE EVENT DATE: 2011
